FAERS Safety Report 23175550 (Version 1)
Quarter: 2023Q4

REPORT INFORMATION
  Report Type: Spontaneous
  Country: EU (occurrence: EU)
  Receive Date: 20231113
  Receipt Date: 20231113
  Transmission Date: 20240109
  Serious: Yes (Life-Threatening)
  Sender: FDA-Public Use
  Company Number: None

PATIENT
  Age: 58 Year
  Sex: Male

DRUGS (5)
  1. RASAGILINE TARTRATE [Concomitant]
     Active Substance: RASAGILINE TARTRATE
     Indication: Parkinson^s disease
     Route: 048
  2. OCTAGAM IMMUNE GLOBULIN (HUMAN) [Suspect]
     Active Substance: HUMAN IMMUNOGLOBULIN G
     Indication: Hypergammaglobulinaemia
     Dosage: MASKED
     Route: 042
     Dates: start: 20230905, end: 20230905
  3. CHOLECALCIFEROL CONCENTRATE (POWDER FORM)/CALCIUM CARBONATE [Concomitant]
     Indication: Product used for unknown indication
     Route: 048
  4. SULFAMETHOXAZOLE\TRIMETHOPRIM [Concomitant]
     Active Substance: SULFAMETHOXAZOLE\TRIMETHOPRIM
     Indication: Product used for unknown indication
     Route: 048
     Dates: start: 20230814
  5. CARBIDOPA\LEVODOPA [Concomitant]
     Active Substance: CARBIDOPA\LEVODOPA
     Indication: Product used for unknown indication
     Route: 048

REACTIONS (8)
  - Heart rate increased [Recovered/Resolved]
  - Respiratory rate increased [Recovered/Resolved]
  - Cytokine release syndrome [Recovered/Resolved]
  - Blood pressure increased [Recovered/Resolved]
  - Dyspnoea [Recovered/Resolved]
  - Pyrexia [Recovered/Resolved]
  - Oxygen saturation decreased [Recovered/Resolved]
  - Anaphylactic reaction [Recovered/Resolved]

NARRATIVE: CASE EVENT DATE: 20230905
